FAERS Safety Report 8483111-3 (Version None)
Quarter: 2012Q2

REPORT INFORMATION
  Report Type: 
  Country: None (occurrence: None)
  Receive Date: 20120625
  Receipt Date: 20120613
  Transmission Date: 20120825
  Serious: Yes (Hospitalization, Other)
  Sender: FDA-Public Use
  Company Number: MCA-N-12-067/01

PATIENT
  Age: 4 Year
  Sex: Female

DRUGS (1)
  1. VALPROIC ACID [Suspect]
     Indication: CONVULSION
     Dosage: 31 MG/KG/DAY 5 MG/KG/DAY 31 MG/KG/DAY

REACTIONS (5)
  - HALLUCINATION, TACTILE [None]
  - HALLUCINATION, AUDITORY [None]
  - ANXIETY [None]
  - HALLUCINATION, VISUAL [None]
  - WITHDRAWAL SYNDROME [None]
